FAERS Safety Report 6892957-4 (Version None)
Quarter: 2010Q3

REPORT INFORMATION
  Report Type: 
  Country: None (occurrence: None)
  Receive Date: 20100731
  Receipt Date: 20081119
  Transmission Date: 20110219
  Serious: No
  Sender: FDA-Public Use
  Company Number: US-PFIZER INC-2008099714

PATIENT
  Age: 77 Year
  Sex: Female

DRUGS (4)
  1. NEURONTIN [Suspect]
  2. EXTRA STRENGTH TYLENOL PM [Suspect]
     Indication: INSOMNIA
     Route: 048
     Dates: start: 20081029, end: 20081029
  3. RESTORIL [Suspect]
     Indication: INSOMNIA
  4. DRUG, UNSPECIFIED [Concomitant]

REACTIONS (1)
  - DIZZINESS [None]
